FAERS Safety Report 16661152 (Version 1)
Quarter: 2019Q3

REPORT INFORMATION
  Report Type: Report from Study
  Country: CA (occurrence: CA)
  Receive Date: 20190802
  Receipt Date: 20190802
  Transmission Date: 20191004
  Serious: Yes (Hospitalization, Other)
  Sender: FDA-Public Use
  Company Number: CA-PFIZER INC-2799374

PATIENT
  Age: 56 Year
  Sex: Male
  Weight: 57 kg

DRUGS (8)
  1. DOXYCYCLINE. [Concomitant]
     Active Substance: DOXYCYCLINE
     Dosage: UNK
  2. FOLIC ACID. [Concomitant]
     Active Substance: FOLIC ACID
     Dosage: UNK
  3. SIMVASTATIN. [Suspect]
     Active Substance: SIMVASTATIN
     Dosage: UNK
     Route: 065
  4. METFORMIN [Concomitant]
     Active Substance: METFORMIN HYDROCHLORIDE
     Dosage: UNK
  5. HUMIRA [Suspect]
     Active Substance: ADALIMUMAB
     Indication: PSORIASIS
     Dosage: 40 MG, 1 EVERY 2 WEEKS
     Route: 058
  6. ASPIRIN /00002701/ [Concomitant]
     Active Substance: ASPIRIN
     Dosage: UNK
  7. CILAZAPRIL W/HYDROCHLOROTHIAZIDE [Suspect]
     Active Substance: CILAZAPRIL ANHYDROUS\HYDROCHLOROTHIAZIDE
     Dosage: UNK
     Route: 065
  8. METHOTREXATE SODIUM. [Suspect]
     Active Substance: METHOTREXATE SODIUM
     Dosage: 15 MG, 1 EVERY 1 WEEK
     Route: 065

REACTIONS (13)
  - Psoriasis [Unknown]
  - Colitis [Unknown]
  - Diarrhoea [Unknown]
  - Cushingoid [Unknown]
  - Infection [Unknown]
  - Adrenal insufficiency [Unknown]
  - Tremor [Unknown]
  - Chills [Unknown]
  - Hypomagnesaemia [Unknown]
  - Spinal disorder [Unknown]
  - Dermatitis exfoliative [Unknown]
  - Hepatic enzyme increased [Unknown]
  - Pyrexia [Unknown]
